FAERS Safety Report 8462167-8 (Version None)
Quarter: 2012Q2

REPORT INFORMATION
  Report Type: 
  Country: None (occurrence: None)
  Receive Date: 20120625
  Receipt Date: 20120613
  Transmission Date: 20120825
  Serious: Yes (Other)
  Sender: FDA-Public Use
  Company Number: US-NOVOPROD-348878

PATIENT
  Age: 35 Year
  Sex: Female
  Weight: 123.81 kg

DRUGS (10)
  1. VICTOZA [Suspect]
     Dosage: 1.8 MG, QD
     Route: 058
     Dates: start: 20120411
  2. ALLEGRA-D 12 HOUR [Concomitant]
     Indication: PRODUCT USED FOR UNKNOWN INDICATION
     Route: 048
  3. VICODIN [Concomitant]
     Indication: PAIN
     Dosage: 5 MG/500MG-1 TAB Q4-6 HRS, PRN
     Route: 048
  4. VICTOZA [Suspect]
     Dosage: 1.8 MG, QD
     Route: 058
     Dates: end: 20120323
  5. VICTOZA [Suspect]
     Indication: TYPE 2 DIABETES MELLITUS
     Dosage: 1.2 MG, QD
     Route: 058
  6. METFORMIN HCL [Concomitant]
     Indication: TYPE 2 DIABETES MELLITUS
     Dosage: 1000 MG, BID (WITH MORNING AND EVENING MEALS)
     Route: 048
  7. SEASONALE [Concomitant]
     Indication: PRODUCT USED FOR UNKNOWN INDICATION
     Dosage: 1 TAB, QD
     Route: 048
  8. PHENERGAN [Concomitant]
     Indication: PRODUCT USED FOR UNKNOWN INDICATION
     Route: 048
  9. PERCOCET [Concomitant]
     Indication: PRODUCT USED FOR UNKNOWN INDICATION
     Dosage: 1 TAB EVERY 6 HOURS AS NEEDED
     Route: 048
  10. ALBUTEROL [Concomitant]
     Indication: PRODUCT USED FOR UNKNOWN INDICATION
     Dosage: 2 PUFFS BY INHILATION Q4-6 HRS PRN
     Route: 055

REACTIONS (4)
  - CHOLELITHIASIS OBSTRUCTIVE [None]
  - CHOLECYSTITIS ACUTE [None]
  - GALLBLADDER ABSCESS [None]
  - NAUSEA [None]
